FAERS Safety Report 8769576 (Version 2)
Quarter: 2012Q4

REPORT INFORMATION
  Report Type: 
  Country: BR (occurrence: BR)
  Receive Date: 20120905
  Receipt Date: 20120917
  Transmission Date: 20130627
  Serious: Yes (Other)
  Sender: FDA-Public Use
  Company Number: PHHY2012BR075871

PATIENT
  Age: 72 Year
  Sex: Male

DRUGS (3)
  1. FORASEQ [Suspect]
     Indication: BRONCHIAL DISORDER
     Dosage: 1 DF, BID
     Dates: start: 2002, end: 2007
  2. SALMETEROL [Concomitant]
  3. FLUTICASONE [Concomitant]

REACTIONS (8)
  - Congestive cardiomyopathy [Recovering/Resolving]
  - Arrhythmia [Recovering/Resolving]
  - Forced expiratory volume decreased [Recovering/Resolving]
  - Cardiac failure [Recovering/Resolving]
  - Ventricular hypokinesia [Recovering/Resolving]
  - Respiratory tract infection [Recovering/Resolving]
  - Infection [Recovering/Resolving]
  - Dyspnoea [Recovering/Resolving]
